FAERS Safety Report 9142883 (Version 1)
Quarter: 2013Q1

REPORT INFORMATION
  Report Type: Spontaneous
  Country: US (occurrence: US)
  Receive Date: 20130306
  Receipt Date: 20130306
  Transmission Date: 20140127
  Serious: No
  Sender: FDA-Public Use
  Company Number: US-PFIZER INC-2013072030

PATIENT
  Sex: 0

DRUGS (1)
  1. PHOSPHOLINE IODIDE [Suspect]
     Dosage: UNK

REACTIONS (4)
  - Headache [Unknown]
  - Pain [Unknown]
  - Ocular hyperaemia [Unknown]
  - Circumstance or information capable of leading to medication error [Unknown]
